FAERS Safety Report 14088577 (Version 2)
Quarter: 2018Q1

REPORT INFORMATION
  Report Type: Report from Study
  Country: JP (occurrence: JP)
  Receive Date: 20171013
  Receipt Date: 20180110
  Transmission Date: 20180508
  Serious: Yes (Other)
  Sender: FDA-Public Use
  Company Number: PHJP2017JP030560

PATIENT
  Age: 51 Year
  Sex: Male

DRUGS (57)
  1. ARZERRA [Suspect]
     Active Substance: OFATUMUMAB
     Dosage: 2000 MG, QD
     Route: 041
     Dates: start: 20160923, end: 20160923
  2. ARZERRA [Suspect]
     Active Substance: OFATUMUMAB
     Dosage: 2000 MG, QD
     Route: 041
     Dates: start: 20161020, end: 20161020
  3. ACETAMINOPHEN. [Concomitant]
     Active Substance: ACETAMINOPHEN
     Dosage: 400 MG, UNK
     Route: 065
     Dates: start: 20160415, end: 20160415
  4. FEXOFENADINE [Concomitant]
     Active Substance: FEXOFENADINE\FEXOFENADINE HYDROCHLORIDE
     Dosage: 60 MG, UNK
     Route: 065
     Dates: start: 20160311, end: 20160311
  5. FEXOFENADINE [Concomitant]
     Active Substance: FEXOFENADINE\FEXOFENADINE HYDROCHLORIDE
     Dosage: 60 MG, UNK
     Route: 065
     Dates: start: 20160415, end: 20160415
  6. ACETAMINOPHEN. [Concomitant]
     Active Substance: ACETAMINOPHEN
     Dosage: 400 MG, UNK
     Route: 065
     Dates: start: 20160304, end: 20160304
  7. ACETAMINOPHEN. [Concomitant]
     Active Substance: ACETAMINOPHEN
     Dosage: 400 MG, UNK
     Route: 065
     Dates: start: 20160826, end: 20160826
  8. ACETAMINOPHEN. [Concomitant]
     Active Substance: ACETAMINOPHEN
     Dosage: 400 MG, UNK
     Route: 065
     Dates: start: 20161117, end: 20161117
  9. MEROPEN [Concomitant]
     Active Substance: MEROPENEM
     Indication: BACTERIAL INFECTION
     Dosage: 2000 MG, UNK
     Route: 065
  10. FLUCONAZOLE. [Concomitant]
     Active Substance: FLUCONAZOLE
     Indication: INFECTION PROPHYLAXIS
     Dosage: 100 MG, UNK
     Route: 065
  11. ARZERRA [Suspect]
     Active Substance: OFATUMUMAB
     Dosage: 2000 MG, QD
     Route: 041
     Dates: start: 20160723, end: 20160723
  12. ARZERRA [Suspect]
     Active Substance: OFATUMUMAB
     Dosage: 2000 MG, QD
     Route: 041
     Dates: start: 20161117, end: 20161117
  13. MITOXANTRONE [Suspect]
     Active Substance: MITOXANTRONE HYDROCHLORIDE
     Indication: CHRONIC LYMPHOCYTIC LEUKAEMIA
     Dosage: 20 MG, UNK
     Route: 065
  14. FEXOFENADINE [Concomitant]
     Active Substance: FEXOFENADINE\FEXOFENADINE HYDROCHLORIDE
     Dosage: 60 MG, UNK
     Route: 065
     Dates: start: 20160617, end: 20160617
  15. SAWACILLIN [Concomitant]
     Active Substance: AMOXICILLIN
     Indication: INFECTED DERMAL CYST
     Dosage: 1000 MG, UNK
     Route: 065
  16. ARZERRA [Suspect]
     Active Substance: OFATUMUMAB
     Dosage: 2000 MG, QD
     Route: 041
     Dates: start: 20160311, end: 20160311
  17. ARZERRA [Suspect]
     Active Substance: OFATUMUMAB
     Dosage: 2000 MG, QD
     Route: 041
     Dates: start: 20160617, end: 20160617
  18. ARZERRA [Suspect]
     Active Substance: OFATUMUMAB
     Dosage: 2000 MG, QD
     Route: 041
     Dates: start: 20161215, end: 20161215
  19. DEXART [Concomitant]
     Active Substance: DEXAMETHASONE SODIUM PHOSPHATE
     Dosage: 13.2 MG, UNK
     Route: 065
     Dates: start: 20160311, end: 20160311
  20. DEXART [Concomitant]
     Active Substance: DEXAMETHASONE SODIUM PHOSPHATE
     Dosage: 13.2 MG, UNK
     Route: 065
     Dates: start: 20160511, end: 20160511
  21. DEXART [Concomitant]
     Active Substance: DEXAMETHASONE SODIUM PHOSPHATE
     Dosage: 13.2 MG, UNK
     Route: 065
     Dates: start: 20160617, end: 20160617
  22. ACETAMINOPHEN. [Concomitant]
     Active Substance: ACETAMINOPHEN
     Dosage: 400 MG, UNK
     Route: 065
     Dates: start: 20160311, end: 20160311
  23. FEXOFENADINE [Concomitant]
     Active Substance: FEXOFENADINE\FEXOFENADINE HYDROCHLORIDE
     Dosage: 60 MG, UNK
     Route: 065
     Dates: start: 20160511, end: 20160511
  24. FEXOFENADINE [Concomitant]
     Active Substance: FEXOFENADINE\FEXOFENADINE HYDROCHLORIDE
     Dosage: 60 MG, UNK
     Route: 065
     Dates: start: 20160723, end: 20160723
  25. ARZERRA [Suspect]
     Active Substance: OFATUMUMAB
     Dosage: 2000 MG, QD
     Route: 041
     Dates: start: 20160415, end: 20160415
  26. DEXART [Concomitant]
     Active Substance: DEXAMETHASONE SODIUM PHOSPHATE
     Dosage: 13.2 MG, UNK
     Route: 065
     Dates: start: 20160826, end: 20160826
  27. DEXART [Concomitant]
     Active Substance: DEXAMETHASONE SODIUM PHOSPHATE
     Dosage: 13.2 MG, UNK
     Route: 065
     Dates: start: 20160923, end: 20160923
  28. DEXART [Concomitant]
     Active Substance: DEXAMETHASONE SODIUM PHOSPHATE
     Dosage: 13.2 MG, UNK
     Route: 065
     Dates: start: 20161020, end: 20161020
  29. FEXOFENADINE [Concomitant]
     Active Substance: FEXOFENADINE\FEXOFENADINE HYDROCHLORIDE
     Dosage: 60 MG, UNK
     Route: 065
     Dates: start: 20161215, end: 20161215
  30. VFEND [Concomitant]
     Active Substance: VORICONAZOLE
     Indication: FUNGAL INFECTION
     Dosage: 400 MG, UNK
     Route: 065
  31. ARZERRA [Suspect]
     Active Substance: OFATUMUMAB
     Indication: CHRONIC LYMPHOCYTIC LEUKAEMIA
     Dosage: 300 MG, QD
     Route: 041
     Dates: start: 20160226, end: 20160226
  32. BENAMBAX [Suspect]
     Active Substance: PENTAMIDINE
     Indication: INFECTION PROPHYLAXIS
     Dosage: APPROPRIATE DOSES, UNK
     Route: 065
  33. DEXART [Concomitant]
     Active Substance: DEXAMETHASONE SODIUM PHOSPHATE
     Dosage: 13.2 MG, UNK
     Route: 065
     Dates: start: 20160415, end: 20160415
  34. DEXART [Concomitant]
     Active Substance: DEXAMETHASONE SODIUM PHOSPHATE
     Dosage: 13.2 MG, UNK
     Route: 065
     Dates: start: 20161117, end: 20161117
  35. ACETAMINOPHEN. [Concomitant]
     Active Substance: ACETAMINOPHEN
     Dosage: 400 MG, UNK
     Route: 065
     Dates: start: 20160617, end: 20160617
  36. ACETAMINOPHEN. [Concomitant]
     Active Substance: ACETAMINOPHEN
     Dosage: 400 MG, UNK
     Route: 065
     Dates: start: 20160723, end: 20160723
  37. ACETAMINOPHEN. [Concomitant]
     Active Substance: ACETAMINOPHEN
     Dosage: 400 MG, UNK
     Route: 065
     Dates: start: 20160923, end: 20160923
  38. ACETAMINOPHEN. [Concomitant]
     Active Substance: ACETAMINOPHEN
     Dosage: 400 MG, UNK
     Route: 065
     Dates: start: 20161215, end: 20161215
  39. FEXOFENADINE [Concomitant]
     Active Substance: FEXOFENADINE\FEXOFENADINE HYDROCHLORIDE
     Dosage: 60 MG, UNK
     Route: 065
     Dates: start: 20160304, end: 20160304
  40. FEXOFENADINE [Concomitant]
     Active Substance: FEXOFENADINE\FEXOFENADINE HYDROCHLORIDE
     Dosage: 60 MG, UNK
     Route: 065
     Dates: start: 20161020, end: 20161020
  41. FEXOFENADINE [Concomitant]
     Active Substance: FEXOFENADINE\FEXOFENADINE HYDROCHLORIDE
     Dosage: 60 MG, UNK
     Route: 065
     Dates: start: 20161117, end: 20161117
  42. ARZERRA [Suspect]
     Active Substance: OFATUMUMAB
     Dosage: 2000 MG, QD
     Route: 041
     Dates: start: 20160304, end: 20160304
  43. ARZERRA [Suspect]
     Active Substance: OFATUMUMAB
     Dosage: 2000 MG, QD
     Route: 041
     Dates: start: 20160511, end: 20160511
  44. ARZERRA [Suspect]
     Active Substance: OFATUMUMAB
     Dosage: 2000 MG, QD
     Route: 041
     Dates: start: 20160826, end: 20160826
  45. DEXART [Concomitant]
     Active Substance: DEXAMETHASONE SODIUM PHOSPHATE
     Dosage: 13.2 MG, UNK
     Route: 065
     Dates: start: 20160304, end: 20160304
  46. DEXART [Concomitant]
     Active Substance: DEXAMETHASONE SODIUM PHOSPHATE
     Dosage: 13.2 MG, UNK
     Route: 065
     Dates: start: 20161215, end: 20161215
  47. ACETAMINOPHEN. [Concomitant]
     Active Substance: ACETAMINOPHEN
     Indication: PREMEDICATION
     Dosage: 400 MG, QD
     Route: 065
     Dates: start: 20160226, end: 20160226
  48. FEXOFENADINE [Concomitant]
     Active Substance: FEXOFENADINE\FEXOFENADINE HYDROCHLORIDE
     Dosage: 60 MG, UNK
     Route: 065
     Dates: start: 20160826, end: 20160826
  49. FEXOFENADINE [Concomitant]
     Active Substance: FEXOFENADINE\FEXOFENADINE HYDROCHLORIDE
     Dosage: 60 MG, UNK
     Route: 065
     Dates: start: 20160923, end: 20160923
  50. LEUSTATIN [Suspect]
     Active Substance: CLADRIBINE
     Indication: CHRONIC LYMPHOCYTIC LEUKAEMIA
     Dosage: 8 MG, UNK
     Route: 065
  51. DEXART [Concomitant]
     Active Substance: DEXAMETHASONE SODIUM PHOSPHATE
     Indication: PREMEDICATION
     Dosage: 13.2 MG, UNK
     Route: 065
     Dates: start: 20160226, end: 20160226
  52. DEXART [Concomitant]
     Active Substance: DEXAMETHASONE SODIUM PHOSPHATE
     Dosage: 13.2 MG, UNK
     Route: 065
     Dates: start: 20160723, end: 20160723
  53. ACETAMINOPHEN. [Concomitant]
     Active Substance: ACETAMINOPHEN
     Dosage: 400 MG, UNK
     Route: 065
     Dates: start: 20160511, end: 20160511
  54. ACETAMINOPHEN. [Concomitant]
     Active Substance: ACETAMINOPHEN
     Dosage: 400 MG, UNK
     Route: 065
     Dates: start: 20161020, end: 20161020
  55. FEXOFENADINE [Concomitant]
     Active Substance: FEXOFENADINE\FEXOFENADINE HYDROCHLORIDE
     Indication: PREMEDICATION
     Dosage: 60 MG, UNK
     Route: 065
     Dates: start: 20160226, end: 20160226
  56. ACICLOVIR [Concomitant]
     Active Substance: ACYCLOVIR
     Indication: INFECTION PROPHYLAXIS
     Dosage: 200 MG, UNK
     Route: 065
  57. LEVOFLOXACIN. [Concomitant]
     Active Substance: LEVOFLOXACIN
     Indication: INFECTED DERMAL CYST
     Dosage: 500 MG, UNK
     Route: 065

REACTIONS (5)
  - Neutrophil count decreased [Recovered/Resolved]
  - Oedema [Recovered/Resolved]
  - Dyspnoea [Recovered/Resolved]
  - Blood pressure increased [Recovered/Resolved]
  - White blood cell count decreased [Recovered/Resolved]

NARRATIVE: CASE EVENT DATE: 20160228
